FAERS Safety Report 25543718 (Version 1)
Quarter: 2025Q3

REPORT INFORMATION
  Report Type: Spontaneous
  Country: CA (occurrence: CA)
  Receive Date: 20250711
  Receipt Date: 20250711
  Transmission Date: 20251020
  Serious: Yes (Other)
  Sender: HIKMA
  Company Number: CA-HIKMA PHARMACEUTICALS-CA-H14001-25-08352

PATIENT
  Age: 57 Year
  Sex: Male

DRUGS (11)
  1. ARIPIPRAZOLE [Suspect]
     Active Substance: ARIPIPRAZOLE
     Indication: Back pain
     Dosage: 10 MILLIGRAM, QD
     Route: 065
  2. BUPRENORPHINE [Suspect]
     Active Substance: BUPRENORPHINE
     Indication: Drug use disorder
     Route: 065
  3. BUPRENORPHINE [Suspect]
     Active Substance: BUPRENORPHINE
     Indication: Back pain
  4. CITALOPRAM [Suspect]
     Active Substance: CITALOPRAM
     Indication: Back pain
     Dosage: 40 MILLIGRAM, QD
     Route: 065
  5. MIRTAZAPINE [Suspect]
     Active Substance: MIRTAZAPINE
     Indication: Back pain
     Dosage: 30 MILLIGRAM, QD
     Route: 065
  6. NALOXONE [Suspect]
     Active Substance: NALOXONE
     Indication: Drug use disorder
     Route: 065
  7. NALOXONE [Suspect]
     Active Substance: NALOXONE
     Indication: Back pain
  8. QUETIAPINE [Suspect]
     Active Substance: QUETIAPINE
     Indication: Back pain
     Dosage: 400 MILLIGRAM, QD
     Route: 065
  9. DULOXETINE [Suspect]
     Active Substance: DULOXETINE
     Indication: Back pain
     Dosage: 120 MILLIGRAM, QD
     Route: 065
  10. ZOPICLONE [Suspect]
     Active Substance: ZOPICLONE
     Indication: Back pain
     Dosage: 7.5 MILLIGRAM, QD
     Route: 065
  11. DONEPEZIL [Concomitant]
     Active Substance: DONEPEZIL
     Indication: Cognitive disorder
     Dosage: 10 MILLIGRAM, QD
     Route: 065

REACTIONS (3)
  - Dementia [Recovering/Resolving]
  - Neurodegenerative disorder [Recovering/Resolving]
  - Substance dependence [Recovering/Resolving]
